FAERS Safety Report 7602969-0 (Version None)
Quarter: 2011Q3

REPORT INFORMATION
  Report Type: 
  Country: None (occurrence: None)
  Receive Date: 20110712
  Receipt Date: 20110418
  Transmission Date: 20111222
  Serious: No
  Sender: FDA-Public Use
  Company Number: A0924240A

PATIENT
  Sex: Male

DRUGS (2)
  1. JALYN [Suspect]
     Dosage: 1CAP UNKNOWN
     Route: 048
  2. CONCURRENT MEDICATIONS [Concomitant]

REACTIONS (2)
  - DRUG INTERACTION [None]
  - WEIGHT INCREASED [None]
